FAERS Safety Report 6532535-X (Version None)
Quarter: 2010Q1

REPORT INFORMATION
  Report Type: 
  Country: None (occurrence: None)
  Receive Date: 20100111
  Receipt Date: 20091230
  Transmission Date: 20100710
  Serious: No
  Sender: FDA-Public Use
  Company Number: US-JNJFOC-20100100535

PATIENT
  Sex: Female
  Weight: 79.83 kg

DRUGS (1)
  1. FENTANYL [Suspect]
     Indication: BACK PAIN
     Route: 062

REACTIONS (6)
  - APPLICATION SITE EROSION [None]
  - DRUG INEFFECTIVE [None]
  - PRODUCT ADHESION ISSUE [None]
  - PRODUCT QUALITY ISSUE [None]
  - THERAPEUTIC RESPONSE DELAYED [None]
  - WRONG TECHNIQUE IN DRUG USAGE PROCESS [None]
